FAERS Safety Report 5768077-9 (Version None)
Quarter: 2008Q2

REPORT INFORMATION
  Report Type: 
  Country: None (occurrence: None)
  Receive Date: 20080612
  Receipt Date: 20080107
  Transmission Date: 20081010
  Serious: No
  Sender: FDA-Public Use
  Company Number: US-ASTRAZENECA-2008UW00421

PATIENT
  Age: 59 Year
  Sex: Female
  Weight: 76.7 kg

DRUGS (6)
  1. FASLODEX [Suspect]
     Route: 030
  2. FASLODEX [Interacting]
     Route: 030
     Dates: start: 20071228
  3. METHOTREXATE [Interacting]
     Indication: LYMPHOMATOID PAPULOSIS
  4. FOLIC ACID [Concomitant]
  5. HYDROCHLOROTHIAZIDE [Concomitant]
  6. VITAMIN CAP [Concomitant]

REACTIONS (7)
  - DRUG INTERACTION [None]
  - FATIGUE [None]
  - HOT FLUSH [None]
  - INJECTION SITE ERYTHEMA [None]
  - INJECTION SITE PRURITUS [None]
  - INJECTION SITE SWELLING [None]
  - URTICARIA [None]
